FAERS Safety Report 4716461-4 (Version None)
Quarter: 2005Q3

REPORT INFORMATION
  Report Type: 
  Country: None (occurrence: None)
  Receive Date: 20050714
  Receipt Date: 20050705
  Transmission Date: 20060218
  Serious: Yes (Other)
  Sender: FDA-Public Use
  Company Number: SGB1-2005-00198

PATIENT
  Age: 55 Year
  Sex: Female

DRUGS (1)
  1. ANAGRELIDE HCL [Suspect]
     Indication: THROMBOCYTHAEMIA
     Dates: start: 20050331

REACTIONS (2)
  - ACANTHOSIS NIGRICANS [None]
  - SEBORRHOEIC KERATOSIS [None]
